FAERS Safety Report 15878817 (Version 1)
Quarter: 2019Q1

REPORT INFORMATION
  Report Type: Spontaneous
  Country: US (occurrence: US)
  Receive Date: 20190103
  Receipt Date: 20190103
  Transmission Date: 20190417
  Serious: Yes (Hospitalization)
  Sender: FDA-Public Use
  Company Number: None

PATIENT
  Sex: Male
  Weight: 85 kg

DRUGS (1)
  1. TEMOZOLOMIDE. [Suspect]
     Active Substance: TEMOZOLOMIDE
     Dates: end: 20181116

REACTIONS (5)
  - Influenza [None]
  - Confusional state [None]
  - Brain oedema [None]
  - Atrial fibrillation [None]
  - Disease progression [None]

NARRATIVE: CASE EVENT DATE: 20181116
